FAERS Safety Report 4984709-7 (Version None)
Quarter: 2006Q2

REPORT INFORMATION
  Report Type: 
  Country: None (occurrence: None)
  Receive Date: 20060427
  Receipt Date: 20060310
  Transmission Date: 20061013
  Serious: Yes (Hospitalization, Other)
  Sender: FDA-Public Use
  Company Number: US-AMGEN-US171983

PATIENT
  Sex: Female
  Weight: 71 kg

DRUGS (9)
  1. EPOGEN [Suspect]
     Indication: DIALYSIS
     Route: 058
     Dates: start: 20040401, end: 20060210
  2. PROCRIT [Suspect]
     Indication: DIALYSIS
     Route: 058
     Dates: start: 20060215
  3. COLACE [Concomitant]
  4. SODIUM BICARBONATE [Concomitant]
  5. RENAGEL [Concomitant]
  6. FOSRENOL [Concomitant]
  7. BENTYL [Concomitant]
  8. DULCOLAX [Concomitant]
  9. ZYLOPRIM [Concomitant]

REACTIONS (4)
  - BONE MARROW FAILURE [None]
  - CATHETER RELATED INFECTION [None]
  - HAEMOGLOBIN DECREASED [None]
  - STAPHYLOCOCCAL INFECTION [None]
